FAERS Safety Report 4344426-3 (Version None)
Quarter: 2004Q2

REPORT INFORMATION
  Report Type: 
  Country: None (occurrence: None)
  Receive Date: 20040419
  Receipt Date: 20040406
  Transmission Date: 20050107
  Serious: Yes (Hospitalization)
  Sender: FDA-Public Use
  Company Number: GB -JNJFOC-20040401171

PATIENT
  Age: 69 Year
  Sex: Female

DRUGS (10)
  1. TRAMADOL HCL [Suspect]
     Dosage: 50 MG, ORAL
     Route: 048
  2. ENBREL [Suspect]
     Indication: ARTHRITIS
     Dosage: 25 MG, 2 IN 1 WEEK, SUBCUTANEOUS
     Route: 058
     Dates: start: 20010101
  3. DOXAZOSIN MESLYLATE [Concomitant]
  4. FENTANYL [Concomitant]
  5. FOLIC ACID [Concomitant]
  6. HYPROMELLOSE           (HYPROMELLOSE) [Concomitant]
  7. METHOTREXATE [Concomitant]
  8. INSULIN [Concomitant]
  9. AMLODIPINE [Concomitant]
  10. PREDNISOLONE [Concomitant]

REACTIONS (1)
  - MYOCARDIAL INFARCTION [None]
